FAERS Safety Report 18217646 (Version 4)
Quarter: 2020Q4

REPORT INFORMATION
  Report Type: Spontaneous
  Country: US (occurrence: US)
  Receive Date: 20200901
  Receipt Date: 20201001
  Transmission Date: 20210113
  Serious: Yes (Hospitalization, Other)
  Sender: FDA-Public Use
  Company Number: US-ASTRAZENECA-2020SF07956

PATIENT
  Age: 20547 Day
  Sex: Male
  Weight: 128.1 kg

DRUGS (12)
  1. PRAVASTATIN. [Concomitant]
     Active Substance: PRAVASTATIN
     Dosage: DOSE AND FREQUENCY UNKNOWN
     Route: 065
  2. SPIRONOLACTONE. [Concomitant]
     Active Substance: SPIRONOLACTONE
     Dosage: DOSE AND FREQUENCY UNKNOWN
     Route: 065
  3. COREG [Concomitant]
     Active Substance: CARVEDILOL
     Dosage: DOSE AND FREQUENCY UNKNOWN
     Route: 065
  4. PLAVIX [Concomitant]
     Active Substance: CLOPIDOGREL BISULFATE
     Dosage: DOSE AND FREQUENCY UNKNOWN
     Route: 065
  5. LASIX [Concomitant]
     Active Substance: FUROSEMIDE
     Route: 065
  6. ISOSORBIDE DINITRATE. [Concomitant]
     Active Substance: ISOSORBIDE DINITRATE
  7. ASPIRIN. [Concomitant]
     Active Substance: ASPIRIN
     Dosage: DOSE AND FREQUENCY UNKNOWN
     Route: 065
  8. INTRESTO 24/26 [Concomitant]
     Dosage: DOSE AND FREQUENCY UNKNOWN
     Route: 065
  9. NPH INSULIN [Concomitant]
     Active Substance: INSULIN BEEF
  10. FARXIGA [Suspect]
     Active Substance: DAPAGLIFLOZIN PROPANEDIOL
     Indication: CARDIAC FAILURE CONGESTIVE
     Route: 048
     Dates: start: 20200626, end: 20200813
  11. POTASSIUM [Concomitant]
     Active Substance: POTASSIUM
     Dosage: DOSE AND FREQUENCY UNKNOWN
     Route: 065
  12. HYDRALAZINE HYDROCHLORIDE. [Concomitant]
     Active Substance: HYDRALAZINE HYDROCHLORIDE

REACTIONS (8)
  - Muscular weakness [Recovered/Resolved]
  - Type 2 diabetes mellitus [Unknown]
  - Diabetic ketoacidosis [Recovered/Resolved]
  - Intentional product misuse [Unknown]
  - Visual impairment [Recovered/Resolved]
  - Glycosylated haemoglobin increased [Unknown]
  - Feeling abnormal [Unknown]
  - Glomerular filtration rate decreased [Recovering/Resolving]

NARRATIVE: CASE EVENT DATE: 20200813
